FAERS Safety Report 16373390 (Version 1)
Quarter: 2019Q2

REPORT INFORMATION
  Report Type: Spontaneous
  Country: US (occurrence: US)
  Receive Date: 20190530
  Receipt Date: 20190530
  Transmission Date: 20190711
  Serious: No
  Sender: FDA-Public Use
  Company Number: US-SA-2019SA143841

PATIENT
  Sex: Male

DRUGS (5)
  1. PROAIR HFA [Concomitant]
     Active Substance: ALBUTEROL SULFATE
  2. RYVENT [Concomitant]
     Active Substance: CARBINOXAMINE MALEATE
  3. GUANFACINE. [Concomitant]
     Active Substance: GUANFACINE
  4. QVAR REDIHALER [Concomitant]
     Active Substance: BECLOMETHASONE DIPROPIONATE
  5. DUPIXENT [Suspect]
     Active Substance: DUPILUMAB
     Indication: DERMATITIS ATOPIC
     Dosage: 2 DF, 1X
     Route: 058
     Dates: start: 20190514

REACTIONS (3)
  - Wound [Unknown]
  - Pruritus [Unknown]
  - Rash [Unknown]
